FAERS Safety Report 8084209 (Version 14)
Quarter: 2014Q3

REPORT INFORMATION
  Report Type: Report from Study
  Country: CA (occurrence: CA)
  Receive Date: 20110810
  Receipt Date: 20140929
  Transmission Date: 20150326
  Serious: Yes (Hospitalization, Other)
  Sender: FDA-Public Use
  Company Number: PHHY2011CA52299

PATIENT
  Age: 73 Year
  Sex: Male

DRUGS (5)
  1. AFINITOR [Suspect]
     Active Substance: EVEROLIMUS
     Dosage: 5 MG, QD
     Route: 048
     Dates: start: 20120717, end: 20121206
  2. CORTISONE [Concomitant]
     Active Substance: CORTISONE\HYDROCORTISONE
     Dosage: UNK UKN, UNK
     Dates: start: 20131018
  3. GLUCOPHAGE [Concomitant]
     Active Substance: METFORMIN HYDROCHLORIDE
  4. SANDOSTATIN LAR DEPOT [Suspect]
     Active Substance: OCTREOTIDE ACETATE
     Indication: PANCREATIC NEUROENDOCRINE TUMOUR
     Dosage: 30 MG, EVERY 4 WEEKS
     Route: 030
     Dates: start: 20110315
  5. AFINITOR [Suspect]
     Active Substance: EVEROLIMUS
     Indication: PANCREATIC NEUROENDOCRINE TUMOUR
     Dosage: 10 MG.QD
     Route: 048
     Dates: start: 20120529, end: 20120629

REACTIONS (13)
  - Balance disorder [Unknown]
  - Hearing impaired [Unknown]
  - Dizziness [Unknown]
  - Sleep disorder [Unknown]
  - Malignant neoplasm progression [Unknown]
  - Back pain [Unknown]
  - Anxiety [Unknown]
  - Discomfort [Unknown]
  - Heart rate decreased [Unknown]
  - Blood pressure increased [Unknown]
  - Insomnia [Unknown]
  - Fall [Unknown]
  - Neoplasm [Unknown]

NARRATIVE: CASE EVENT DATE: 20140923
